FAERS Safety Report 21605876 (Version 3)
Quarter: 2023Q1

REPORT INFORMATION
  Report Type: Spontaneous
  Country: AU (occurrence: AU)
  Receive Date: 20221116
  Receipt Date: 20230331
  Transmission Date: 20230418
  Serious: Yes (Other)
  Sender: FDA-Public Use
  Company Number: AU-ABBVIE-4197179

PATIENT
  Age: 20 Year
  Sex: Female
  Weight: 65 kg

DRUGS (4)
  1. UPADACITINIB [Suspect]
     Active Substance: UPADACITINIB
     Indication: Dermatitis atopic
     Route: 048
     Dates: start: 20220301, end: 20220707
  2. UPADACITINIB [Suspect]
     Active Substance: UPADACITINIB
     Indication: Dermatitis atopic
     Route: 048
     Dates: start: 202112
  3. Levlen (Ethinylestradiol;Levonorgestrel) [Concomitant]
     Indication: Contraception
     Dosage: 1; NO UNITS PROVIDED
     Route: 048
     Dates: start: 202207, end: 202207
  4. Depo provera (Medroxyprogesterone acetate) [Concomitant]
     Indication: Contraception
     Route: 030
     Dates: end: 202204

REACTIONS (2)
  - Abortion spontaneous [Unknown]
  - Maternal exposure during pregnancy [Unknown]

NARRATIVE: CASE EVENT DATE: 20220817
